FAERS Safety Report 9916316 (Version 4)
Quarter: 2014Q2

REPORT INFORMATION
  Report Type: Report from Study
  Country: AU (occurrence: AU)
  Receive Date: 20140221
  Receipt Date: 20140414
  Transmission Date: 20141212
  Serious: Yes (Death, Hospitalization, Disabling, Other)
  Sender: FDA-Public Use
  Company Number: PHHY2014AU010885

PATIENT
  Age: 55 Year
  Sex: Female

DRUGS (13)
  1. CLOZARIL [Suspect]
     Dosage: 375 MG, NOCTE
     Route: 048
     Dates: start: 200111, end: 20140106
  2. RISPERIDONE [Concomitant]
     Dosage: 0.5 MG, BID
  3. LORAZEPAM [Concomitant]
     Dosage: 2 MG, TID
     Route: 062
  4. LORAZEPAM [Concomitant]
     Dosage: 1 MG, TID
  5. BENZTROPINE [Concomitant]
     Dosage: 2 MG, BID
  6. TETRABENAZINE [Concomitant]
     Dosage: 50 MG, BID
  7. METFORMIN [Concomitant]
     Dosage: 500 MG, BID
  8. ATORVASTATIN [Concomitant]
     Dosage: 10 MG, NOCTE
  9. GEMFIBROZIL [Concomitant]
     Dosage: 600 MG, BID
  10. VIT. E [Concomitant]
     Dosage: 500 IU, TID
     Route: 062
  11. MULTI-VIT [Concomitant]
     Dosage: 1 DF, MANE
  12. NEO-CYTAMEN [Concomitant]
     Dosage: 1 DF, EVERY 3 MONTHS
     Route: 030
  13. CLEARLAX [Concomitant]
     Dosage: 1 DF, DAILY

REACTIONS (20)
  - Somnolence [Fatal]
  - Fall [Recovered/Resolved with Sequelae]
  - Altered state of consciousness [Not Recovered/Not Resolved]
  - Joint dislocation [Not Recovered/Not Resolved]
  - Speech disorder [Not Recovered/Not Resolved]
  - Cerebral atrophy [Unknown]
  - Epilepsy [Unknown]
  - Type 2 diabetes mellitus [Unknown]
  - Vitamin B complex deficiency [Unknown]
  - Blood calcium decreased [Unknown]
  - Red blood cell count decreased [Unknown]
  - Haematocrit decreased [Unknown]
  - Protein deficiency [Unknown]
  - Blood albumin decreased [Unknown]
  - Monocyte count increased [Unknown]
  - Haemoglobin decreased [Unknown]
  - Constipation [Unknown]
  - Antipsychotic drug level increased [Unknown]
  - Hypercholesterolaemia [Unknown]
  - Dysphagia [Unknown]
